FAERS Safety Report 9051326 (Version 1)
Quarter: 2013Q1

REPORT INFORMATION
  Report Type: Spontaneous
  Country: US (occurrence: US)
  Receive Date: 20130206
  Receipt Date: 20130206
  Transmission Date: 20140127
  Serious: No
  Sender: FDA-Public Use
  Company Number: US-009507513-1301USA013652

PATIENT
  Sex: Male
  Weight: 85.26 kg

DRUGS (6)
  1. VICTRELIS [Suspect]
     Dosage: 800 MG, TID
     Route: 048
  2. PEGASYS [Suspect]
  3. LORAZEPAM [Concomitant]
     Route: 048
  4. RIBAVIRIN [Suspect]
     Route: 048
  5. OXYCODONE [Concomitant]
     Route: 048
  6. LOSARTAN POTASSIUM [Concomitant]
     Route: 048

REACTIONS (2)
  - Fatigue [Unknown]
  - Anaemia [Unknown]
